FAERS Safety Report 6140356-5 (Version None)
Quarter: 2009Q1

REPORT INFORMATION
  Report Type: 
  Country: None (occurrence: None)
  Receive Date: 20090330
  Receipt Date: 20081203
  Transmission Date: 20090719
  Serious: Yes (Hospitalization)
  Sender: FDA-Public Use
  Company Number: CHNY2008FR04615

PATIENT
  Age: 71 Year
  Sex: Female

DRUGS (6)
  1. HYOSCINE HBR HYT [Suspect]
     Indication: PROPHYLAXIS AGAINST MOTION SICKNESS
     Dosage: DF, ONCE/SINGLE, TRANSDERMAL
     Route: 062
     Dates: start: 20081001, end: 20081030
  2. GLYBURIDE [Concomitant]
  3. CRESTOR [Concomitant]
  4. COVERSYL /BEL/ (PERINDOPRIL ERBUMINE) [Concomitant]
  5. DIOSMINE (DIOSMIN) [Concomitant]
  6. ALLOPURINOL [Concomitant]

REACTIONS (8)
  - AMNESIA [None]
  - BALANCE DISORDER [None]
  - CONFUSIONAL STATE [None]
  - DECREASED ACTIVITY [None]
  - DELIRIUM [None]
  - EPISTAXIS [None]
  - EYE DISORDER [None]
  - GAIT DISTURBANCE [None]
